FAERS Safety Report 14752306 (Version 2)
Quarter: 2018Q2

REPORT INFORMATION
  Report Type: Spontaneous
  Country: BG (occurrence: BG)
  Receive Date: 20180412
  Receipt Date: 20180517
  Transmission Date: 20180711
  Serious: Yes (Other)
  Sender: FDA-Public Use
  Company Number: BG-009507513-1804BGR004864

PATIENT
  Age: 25 Year
  Sex: Female

DRUGS (1)
  1. ZEPATIER [Suspect]
     Active Substance: ELBASVIR\GRAZOPREVIR
     Indication: HEPATITIS C
     Dosage: UNK
     Route: 048
     Dates: start: 201803

REACTIONS (2)
  - Anxiety disorder [Recovered/Resolved]
  - Major depression [Recovered/Resolved]

NARRATIVE: CASE EVENT DATE: 201803
